FAERS Safety Report 12424852 (Version 2)
Quarter: 2016Q2

REPORT INFORMATION
  Report Type: Spontaneous
  Country: SE (occurrence: SE)
  Receive Date: 20160601
  Receipt Date: 20160627
  Transmission Date: 20160815
  Serious: Yes (Life-Threatening, Hospitalization, Other)
  Sender: FDA-Public Use
  Company Number: SE-PFIZER INC-2016279471

PATIENT
  Age: 81 Year
  Sex: Female

DRUGS (10)
  1. ZYVOXID [Suspect]
     Active Substance: LINEZOLID
     Indication: ARTHRITIS BACTERIAL
  2. LEVAXIN [Concomitant]
     Active Substance: LEVOTHYROXINE SODIUM
     Dosage: UNK
  3. DIFLUCAN [Suspect]
     Active Substance: FLUCONAZOLE
     Indication: OSTEITIS
     Dosage: 200 MG, 1X/DAY
     Route: 048
     Dates: start: 20160114, end: 20160226
  4. OVESTERIN [Concomitant]
     Active Substance: ESTRIOL
     Dosage: UNK
     Route: 067
  5. ALVEDON [Concomitant]
     Active Substance: ACETAMINOPHEN
     Dosage: UNK
     Dates: start: 20141019
  6. TOLTERODINE [Concomitant]
     Active Substance: TOLTERODINE
     Dosage: UNK, AS NEEDED
  7. FURIX [Concomitant]
     Active Substance: FUROSEMIDE
     Dosage: UNK, AS NEEDED
  8. ZYVOXID [Suspect]
     Active Substance: LINEZOLID
     Indication: OSTEITIS
     Dosage: 600 MG, 1X/DAY
     Route: 048
     Dates: start: 20160114, end: 20160226
  9. IDOTRIM [Concomitant]
     Dates: start: 20160212, end: 20160215
  10. SELEXID /00445301/ [Concomitant]
     Active Substance: AMDINOCILLIN PIVOXIL HYDROCHLORIDE
     Dates: start: 20160212, end: 20160217

REACTIONS (3)
  - Product use issue [Unknown]
  - Anaemia [Recovered/Resolved]
  - Adrenocortical insufficiency acute [Recovered/Resolved]

NARRATIVE: CASE EVENT DATE: 20160209
